FAERS Safety Report 7511933-1 (Version None)
Quarter: 2011Q2

REPORT INFORMATION
  Report Type: 
  Country: None (occurrence: None)
  Receive Date: 20110520
  Receipt Date: 20110505
  Transmission Date: 20111010
  Serious: Yes (Hospitalization)
  Sender: FDA-Public Use
  Company Number: DSA_46695_2011

PATIENT
  Age: 20 Year
  Sex: Female

DRUGS (4)
  1. BLINDED THERAPY 50 MG [Suspect]
     Indication: PROTEINURIA
     Dosage: (50 MG, ORAL)
     Route: 048
     Dates: start: 20071120, end: 20080213
  2. PLACEBO BASELINE THERAPY (35 MG, 50 MG) [Suspect]
     Indication: PRODUCT USED FOR UNKNOWN INDICATION
     Dosage: (35 MG, ORAL), (50 MG, ORAL)
     Route: 048
     Dates: start: 20071115, end: 20071119
  3. PLACEBO BASELINE THERAPY (35 MG, 50 MG) [Suspect]
     Indication: PRODUCT USED FOR UNKNOWN INDICATION
     Dosage: (35 MG, ORAL), (50 MG, ORAL)
     Route: 048
     Dates: start: 20071024, end: 20071114
  4. ENALAPRIL MALEATE [Suspect]
     Indication: PROTEINURIA
     Dosage: (20 MG, ORAL)
     Route: 048
     Dates: start: 20080214, end: 20101108

REACTIONS (5)
  - CAESAREAN SECTION [None]
  - DRUG EXPOSURE DURING PREGNANCY [None]
  - PREGNANCY [None]
  - VULVOVAGINITIS [None]
  - GESTATIONAL HYPERTENSION [None]
